FAERS Safety Report 16839031 (Version 1)
Quarter: 2019Q3

REPORT INFORMATION
  Report Type: Report from Study
  Country: US (occurrence: US)
  Receive Date: 20190923
  Receipt Date: 20190923
  Transmission Date: 20191005
  Serious: Yes (Other)
  Sender: FDA-Public Use
  Company Number: US-PFIZER INC-2019398668

PATIENT

DRUGS (3)
  1. METHYLPREDNISOLONE SODIUM SUCCINATE. [Suspect]
     Active Substance: METHYLPREDNISOLONE SODIUM SUCCINATE
     Indication: MULTIPLE SCLEROSIS
     Dosage: EVERY 4 WEEKS
  2. NATALIZUMAB [Concomitant]
     Active Substance: NATALIZUMAB
     Indication: MULTIPLE SCLEROSIS
     Dosage: 300 MG, UNK (INFUSION, BASELINE VISIT (DAY 0)
  3. NATALIZUMAB [Concomitant]
     Active Substance: NATALIZUMAB
     Dosage: UNK (AT WEEK 28, RESUMED OPEN-LABEL INFUSIONS OF NATALIZUMAB, CONTINUED THROUGH WEEK 52 (STUDY END))

REACTIONS (1)
  - Brain abscess [Unknown]
